FAERS Safety Report 7076243-8 (Version None)
Quarter: 2010Q4

REPORT INFORMATION
  Report Type: 
  Country: None (occurrence: None)
  Receive Date: 20101101
  Receipt Date: 20101020
  Transmission Date: 20110411
  Serious: Yes (Other)
  Sender: FDA-Public Use
  Company Number: NL-JNJFOC-20101007987

PATIENT
  Age: 45 Year
  Sex: Female

DRUGS (1)
  1. ITRACONAZOLE [Suspect]
     Indication: CANDIDIASIS
     Route: 065

REACTIONS (1)
  - PLEURAL EFFUSION [None]
